FAERS Safety Report 15320807 (Version 1)
Quarter: 2018Q3

REPORT INFORMATION
  Report Type: Spontaneous
  Country: US (occurrence: US)
  Receive Date: 20180827
  Receipt Date: 20180827
  Transmission Date: 20181010
  Serious: No
  Sender: FDA-Public Use
  Company Number: PHEH2018US034528

PATIENT
  Sex: Female

DRUGS (1)
  1. PROMACTA [Suspect]
     Active Substance: ELTROMBOPAG OLAMINE
     Indication: ILL-DEFINED DISORDER
     Dosage: 50 MG, QD
     Route: 048
     Dates: start: 20180807

REACTIONS (3)
  - Headache [Unknown]
  - Pain [Unknown]
  - Rash [Unknown]
